FAERS Safety Report 8218292-X (Version None)
Quarter: 2012Q1

REPORT INFORMATION
  Report Type: 
  Country: None (occurrence: None)
  Receive Date: 20120319
  Receipt Date: 20120308
  Transmission Date: 20120608
  Serious: Yes (Other)
  Sender: FDA-Public Use
  Company Number: US-ROCHE-794124

PATIENT
  Sex: Male
  Weight: 104.42 kg

DRUGS (1)
  1. ACCUTANE [Suspect]
     Indication: ACNE
     Dosage: ONCE A DAY AND TWICE A DAY ON ALTERNATE DAYS.
     Route: 048
     Dates: start: 19960101, end: 20000101

REACTIONS (2)
  - INFLAMMATORY BOWEL DISEASE [None]
  - IRRITABLE BOWEL SYNDROME [None]
